FAERS Safety Report 9124379 (Version 1)
Quarter: 2013Q1

REPORT INFORMATION
  Report Type: Spontaneous
  Country: CH (occurrence: CH)
  Receive Date: 20130116
  Receipt Date: 20130116
  Transmission Date: 20140127
  Serious: Yes (Other)
  Sender: FDA-Public Use
  Company Number: CH-PFIZER INC-2013013689

PATIENT
  Age: 10 Year
  Sex: Female

DRUGS (1)
  1. SUTENT [Suspect]
     Dosage: 37.5 MG 1X/DAY FOR 3 CYCLES (4 WEEKS ON - 2 WEEKS OFF)
     Dates: start: 201110

REACTIONS (11)
  - Off label use [Unknown]
  - Renal failure [Recovered/Resolved]
  - Cardiomyopathy [Recovered/Resolved]
  - Palpitations [Unknown]
  - Educational problem [Unknown]
  - Hypocalcaemia [Unknown]
  - Oedema [Unknown]
  - Dry skin [Not Recovered/Not Resolved]
  - Hair colour changes [Unknown]
  - Fatigue [Recovering/Resolving]
  - Diarrhoea [Unknown]
